FAERS Safety Report 8570601-8 (Version None)
Quarter: 2012Q3

REPORT INFORMATION
  Report Type: 
  Country: None (occurrence: None)
  Receive Date: 20120804
  Receipt Date: 20120713
  Transmission Date: 20120928
  Serious: No
  Sender: FDA-Public Use
  Company Number: US-009507513-1207USA004814

PATIENT

DRUGS (3)
  1. VICTRELIS [Suspect]
     Dosage: 4 DF, Q8H
     Route: 048
  2. PEGASYS [Suspect]
     Dosage: 180 MCG/0.5ML PFS
  3. REBETOL [Suspect]
     Dosage: UNK

REACTIONS (1)
  - HAEMOGLOBIN DECREASED [None]
